FAERS Safety Report 10759362 (Version 1)
Quarter: 2015Q1

REPORT INFORMATION
  Report Type: Spontaneous
  Country: US (occurrence: None)
  Receive Date: 20150126
  Receipt Date: 20150126
  Transmission Date: 20150721
  Serious: Yes (Other)
  Sender: FDA-Public Use
  Company Number: MC201300405

PATIENT
  Age: 53 Year
  Sex: Male

DRUGS (3)
  1. ASPIRIN (ACETYLSALICYLIC ACID) [Concomitant]
     Active Substance: ASPIRIN
  2. PLAVIX (CLOPIOOGREL BISULFATE) [Concomitant]
  3. ANGIOMAX [Suspect]
     Active Substance: BIVALIRUDIN
     Indication: PERCUTANEOUS CORONARY INTERVENTION
     Route: 040
     Dates: start: 20130729, end: 20130729

REACTIONS (6)
  - Electrocardiogram ST segment elevation [None]
  - Thrombosis in device [None]
  - Dyspepsia [None]
  - Coagulation time abnormal [None]
  - Coronary artery thrombosis [None]
  - Nausea [None]

NARRATIVE: CASE EVENT DATE: 20130729
